FAERS Safety Report 12566385 (Version 2)
Quarter: 2016Q3

REPORT INFORMATION
  Report Type: Spontaneous
  Country: PE (occurrence: PE)
  Receive Date: 20160718
  Receipt Date: 20160817
  Transmission Date: 20161109
  Serious: Yes (Disabling)
  Sender: FDA-Public Use
  Company Number: PE-PFIZER INC-2016344217

PATIENT
  Age: 61 Year
  Sex: Female

DRUGS (3)
  1. XANAX XR [Suspect]
     Active Substance: ALPRAZOLAM
     Indication: FIBROMYALGIA
     Dosage: 2 TABLETS OF 1 MG PER DAY AND 3 OR 4 TABLETS DAILY OF 0.5 MG, AS NEEDED (DEPENDING ON MOOD AND ANXIE
  2. XANAX [Suspect]
     Active Substance: ALPRAZOLAM
     Indication: DEPRESSION
     Dosage: 0.5 MG, 3X/DAY
     Dates: start: 2008
  3. XANAX XR [Suspect]
     Active Substance: ALPRAZOLAM
     Indication: INSOMNIA

REACTIONS (6)
  - Drug ineffective [Unknown]
  - Disease recurrence [Unknown]
  - Anxiety [Unknown]
  - Movement disorder [Unknown]
  - Gait disturbance [Unknown]
  - Spinal pain [Unknown]
